FAERS Safety Report 7907865-7 (Version None)
Quarter: 2011Q4

REPORT INFORMATION
  Report Type: 
  Country: None (occurrence: None)
  Receive Date: 20111110
  Receipt Date: 20111103
  Transmission Date: 20120403
  Serious: Yes (Hospitalization)
  Sender: FDA-Public Use
  Company Number: US-US-EMD SERONO, INC.-7093703

PATIENT
  Sex: Female
  Weight: 61 kg

DRUGS (1)
  1. REBIF [Suspect]
     Indication: MULTIPLE SCLEROSIS
     Route: 058
     Dates: start: 20090901

REACTIONS (7)
  - AMNESIA [None]
  - INJECTION SITE HAEMORRHAGE [None]
  - ABORTION SPONTANEOUS [None]
  - MULTIPLE SCLEROSIS RELAPSE [None]
  - INJECTION SITE INDURATION [None]
  - FATIGUE [None]
  - MATERNAL EXPOSURE DURING PREGNANCY [None]
